FAERS Safety Report 23253054 (Version 2)
Quarter: 2025Q4

REPORT INFORMATION
  Report Type: Spontaneous
  Country: GB (occurrence: GB)
  Receive Date: 20231201
  Receipt Date: 20251030
  Transmission Date: 20260119
  Serious: Yes (Other)
  Sender: CELLTRION
  Company Number: GB-CELLTRION INC.-2023GB022998

PATIENT

DRUGS (1)
  1. INFLIXIMAB [Suspect]
     Active Substance: INFLIXIMAB
     Indication: Colitis ulcerative
     Dosage: 120 MG, EVERY 2 WEEKS
     Route: 058
     Dates: start: 20230418

REACTIONS (3)
  - Colitis ulcerative [Not Recovered/Not Resolved]
  - Therapy change [Unknown]
  - Drug ineffective [Unknown]
